FAERS Safety Report 4692391-1 (Version None)
Quarter: 2005Q2

REPORT INFORMATION
  Report Type: 
  Country: None (occurrence: None)
  Receive Date: 20050615
  Receipt Date: 20050526
  Transmission Date: 20051028
  Serious: Yes (Death, Other)
  Sender: FDA-Public Use
  Company Number: JP_050506492

PATIENT
  Age: 52 Year
  Sex: Male
  Weight: 45 kg

DRUGS (12)
  1. ZYPREXA [Suspect]
     Indication: SCHIZOPHRENIA
     Dosage: 10 MG DAY
     Dates: start: 20050423, end: 20050428
  2. LORAZEPAM [Concomitant]
  3. CHLORPROMAZINE [Concomitant]
  4. LULLAN (PEROSPIRONE HYDROCHLORIDE) [Concomitant]
  5. LASIX [Concomitant]
  6. LEVOMEPROMAZINE [Concomitant]
  7. LITHIUM [Concomitant]
  8. PHENOBARBITAL [Concomitant]
  9. FLUNITRAZEPAM [Concomitant]
  10. BROTIZOLAM [Concomitant]
  11. TRIAZOLAM [Concomitant]
  12. PROPERICIAZINE (PERICIAZINE) [Concomitant]

REACTIONS (22)
  - ALANINE AMINOTRANSFERASE INCREASED [None]
  - ASPARTATE AMINOTRANSFERASE INCREASED [None]
  - BLOOD ALKALINE PHOSPHATASE INCREASED [None]
  - BLOOD BILIRUBIN INCREASED [None]
  - BLOOD CREATINE PHOSPHOKINASE INCREASED [None]
  - BLOOD LACTATE DEHYDROGENASE INCREASED [None]
  - BLOOD PRESSURE DECREASED [None]
  - BLOOD SODIUM DECREASED [None]
  - CONDITION AGGRAVATED [None]
  - DEPRESSED LEVEL OF CONSCIOUSNESS [None]
  - GAMMA-GLUTAMYLTRANSFERASE INCREASED [None]
  - HAEMATOCRIT DECREASED [None]
  - HAEMOGLOBIN DECREASED [None]
  - HEART RATE DECREASED [None]
  - HYPERAMMONAEMIA [None]
  - MOUTH BREATHING [None]
  - PICA [None]
  - PLATELET COUNT DECREASED [None]
  - PROCEDURAL COMPLICATION [None]
  - RENAL FAILURE [None]
  - SEPSIS [None]
  - WHITE BLOOD CELL COUNT DECREASED [None]
